FAERS Safety Report 14394759 (Version 1)
Quarter: 2018Q1

REPORT INFORMATION
  Report Type: Spontaneous
  Country: US (occurrence: US)
  Receive Date: 20180116
  Receipt Date: 20180116
  Transmission Date: 20180509
  Serious: No
  Sender: FDA-Public Use
  Company Number: US-ALLERGAN-1704360US

PATIENT
  Age: 30 Year
  Sex: Female
  Weight: 49.9 kg

DRUGS (3)
  1. BOTOX COSMETIC [Suspect]
     Active Substance: ONABOTULINUMTOXINA
     Indication: SKIN WRINKLING
     Dosage: 18 UNITS, SINGLE
     Route: 030
     Dates: start: 20170201, end: 20170201
  2. BOTOX COSMETIC [Suspect]
     Active Substance: ONABOTULINUMTOXINA
     Indication: SKIN WRINKLING
  3. BOTOX COSMETIC [Suspect]
     Active Substance: ONABOTULINUMTOXINA
     Indication: SKIN WRINKLING
     Dosage: 12 UNITS, SINGLE
     Route: 030
     Dates: start: 20170201, end: 20170201

REACTIONS (19)
  - Thyroid mass [Unknown]
  - Dry mouth [Unknown]
  - Nausea [Unknown]
  - Product preparation error [Unknown]
  - Haematuria [Unknown]
  - Insomnia [Unknown]
  - Muscular weakness [Unknown]
  - Dysphagia [Not Recovered/Not Resolved]
  - Dyspnoea [Not Recovered/Not Resolved]
  - Polyuria [Unknown]
  - Blepharitis [Unknown]
  - Headache [Unknown]
  - Rhinitis allergic [Unknown]
  - Fatigue [Unknown]
  - Vision blurred [Not Recovered/Not Resolved]
  - Anxiety [Not Recovered/Not Resolved]
  - Gastrooesophageal reflux disease [Unknown]
  - Gastritis [Unknown]
  - Dry eye [Not Recovered/Not Resolved]

NARRATIVE: CASE EVENT DATE: 20170201
